FAERS Safety Report 8201838-5 (Version None)
Quarter: 2012Q1

REPORT INFORMATION
  Report Type: 
  Country: None (occurrence: None)
  Receive Date: 20120312
  Receipt Date: 20120305
  Transmission Date: 20120608
  Serious: Yes (Death)
  Sender: FDA-Public Use
  Company Number: GR-GILEAD-2012-0052038

PATIENT
  Age: 84 Year
  Sex: Male

DRUGS (2)
  1. AMBRISENTAN [Suspect]
     Indication: PULMONARY HYPERTENSION
  2. AMBRISENTAN [Suspect]
     Indication: PULMONARY FIBROSIS
     Route: 048
     Dates: start: 20111114

REACTIONS (1)
  - DEATH [None]
